FAERS Safety Report 12743195 (Version 3)
Quarter: 2016Q4

REPORT INFORMATION
  Report Type: Spontaneous
  Country: CN (occurrence: CN)
  Receive Date: 20160914
  Receipt Date: 20161007
  Transmission Date: 20170207
  Serious: Yes (Hospitalization)
  Sender: FDA-Public Use
  Company Number: CN-ASTRAZENECA-2016SE95971

PATIENT
  Age: 80 Year
  Sex: Male

DRUGS (9)
  1. BETALOC [Suspect]
     Active Substance: METOPROLOL TARTRATE
     Route: 048
  2. DIOVAN [Concomitant]
     Active Substance: VALSARTAN
  3. AMLODIPINE BESYLATE. [Concomitant]
     Active Substance: AMLODIPINE BESYLATE
  4. TRIMETAZIDINE [Concomitant]
     Active Substance: TRIMETAZIDINE
  5. BETALOC ZOK [Suspect]
     Active Substance: METOPROLOL SUCCINATE
     Route: 048
  6. TICAGRELOR [Suspect]
     Active Substance: TICAGRELOR
     Dosage: 2 TABLETS
     Route: 048
  7. CRESTOR [Suspect]
     Active Substance: ROSUVASTATIN CALCIUM
     Route: 048
  8. BAYASPIRIN [Suspect]
     Active Substance: ASPIRIN
     Dosage: 3 PILLS
     Route: 048
  9. LANSOPRAZOLE. [Concomitant]
     Active Substance: LANSOPRAZOLE

REACTIONS (1)
  - Rhabdomyolysis [Recovered/Resolved]

NARRATIVE: CASE EVENT DATE: 201608
